FAERS Safety Report 6532148-X (Version None)
Quarter: 2010Q1

REPORT INFORMATION
  Report Type: 
  Country: None (occurrence: None)
  Receive Date: 20100108
  Receipt Date: 20100105
  Transmission Date: 20100710
  Serious: Yes (Death, Hospitalization)
  Sender: FDA-Public Use
  Company Number: US-TEVA-219797USA

PATIENT
  Sex: Female
  Weight: 43.2 kg

DRUGS (11)
  1. FLUOROURACIL [Suspect]
     Indication: GASTRIC CANCER
     Route: 041
     Dates: start: 20070418, end: 20070418
  2. FLUOROURACIL [Suspect]
     Route: 041
     Dates: start: 20070418, end: 20070418
  3. FLUOROURACIL [Suspect]
     Route: 040
     Dates: start: 20070509, end: 20070606
  4. FLUOROURACIL [Suspect]
     Route: 041
     Dates: start: 20070509, end: 20070606
  5. FOLINIC ACID [Suspect]
     Indication: GASTRIC CANCER
     Route: 042
     Dates: start: 20070418, end: 20070606
  6. AXITINIB [Suspect]
     Indication: GASTRIC CANCER
     Route: 048
  7. IRINOTECAN HCL [Suspect]
     Indication: GASTRIC CANCER
     Route: 042
     Dates: start: 20070418, end: 20070418
  8. IRINOTECAN HCL [Suspect]
     Route: 042
     Dates: start: 20070509, end: 20070606
  9. VICODIN [Concomitant]
     Dates: start: 20070409
  10. GRANISETRON [Concomitant]
     Dates: start: 20070511
  11. SODIUM CHLORIDE [Concomitant]
     Dates: start: 20070521

REACTIONS (2)
  - ABDOMINAL PAIN [None]
  - RESPIRATORY FAILURE [None]
